FAERS Safety Report 9281911 (Version 4)
Quarter: 2013Q4

REPORT INFORMATION
  Report Type: Spontaneous
  Country: US (occurrence: US)
  Receive Date: 20130510
  Receipt Date: 20131111
  Transmission Date: 20140711
  Serious: Yes (Hospitalization)
  Sender: FDA-Public Use
  Company Number: US-BIOGENIDEC-2013BI039780

PATIENT
  Age: 49 Year
  Sex: Female

DRUGS (2)
  1. AVONEX [Suspect]
     Indication: MULTIPLE SCLEROSIS
     Route: 030
  2. AVONEX [Suspect]
     Indication: MULTIPLE SCLEROSIS
     Route: 030
     Dates: start: 20130409, end: 20130531

REACTIONS (14)
  - Cardiac valve rupture [Recovered/Resolved]
  - Blood pressure increased [Recovered/Resolved]
  - Staphylococcal sepsis [Recovered/Resolved]
  - Multiple sclerosis relapse [Recovered/Resolved]
  - Musculoskeletal disorder [Unknown]
  - Stress [Recovered/Resolved]
  - Gastric disorder [Not Recovered/Not Resolved]
  - Fear of injection [Not Recovered/Not Resolved]
  - Memory impairment [Unknown]
  - Arthropod bite [Unknown]
  - Lyme disease [Unknown]
  - Injection site bruising [Recovered/Resolved]
  - Osteoporosis [Not Recovered/Not Resolved]
  - Injection site pain [Recovered/Resolved]
